FAERS Safety Report 5158437-1 (Version None)
Quarter: 2006Q4

REPORT INFORMATION
  Report Type: 
  Country: None (occurrence: None)
  Receive Date: 20061128
  Receipt Date: 20061114
  Transmission Date: 20070319
  Serious: Yes (Other)
  Sender: FDA-Public Use
  Company Number: PHBS2006FR18055

PATIENT
  Sex: Female

DRUGS (1)
  1. FORMOTEROL [Suspect]

REACTIONS (3)
  - ASTHMA [None]
  - DERMATITIS ATOPIC [None]
  - MILK ALLERGY [None]
